FAERS Safety Report 14013820 (Version 1)
Quarter: 2017Q3

REPORT INFORMATION
  Report Type: Spontaneous
  Country: US (occurrence: US)
  Receive Date: 20170926
  Receipt Date: 20170926
  Transmission Date: 20171128
  Serious: Yes (Hospitalization)
  Sender: FDA-Public Use
  Company Number: US-BAUSCH-BL-2017-027813

PATIENT
  Age: 68 Year
  Sex: Female

DRUGS (1)
  1. XIFAXAN [Suspect]
     Active Substance: RIFAXIMIN
     Indication: HEPATIC ENCEPHALOPATHY
     Route: 065
     Dates: start: 201706

REACTIONS (3)
  - Renal failure [Unknown]
  - Ammonia increased [Unknown]
  - Electrolyte imbalance [Unknown]

NARRATIVE: CASE EVENT DATE: 201708
